FAERS Safety Report 11505653 (Version 1)
Quarter: 2015Q3

REPORT INFORMATION
  Report Type: Spontaneous
  Country: US (occurrence: US)
  Receive Date: 20150915
  Receipt Date: 20150915
  Transmission Date: 20151125
  Serious: No
  Sender: FDA-Public Use
  Company Number: US-ROCHE-773018

PATIENT
  Sex: Female

DRUGS (3)
  1. PEGASYS [Suspect]
     Active Substance: PEGINTERFERON ALFA-2A
     Indication: HEPATITIS C
     Dosage: FORM: PRE-FILLED SYRINGE
     Route: 065
  2. RIBASPHERE [Suspect]
     Active Substance: RIBAVIRIN
     Indication: HEPATITIS C
     Route: 065
  3. LANTUS [Concomitant]
     Active Substance: INSULIN GLARGINE
     Indication: DIABETES MELLITUS
     Dosage: LANTUS INSULIN
     Route: 065

REACTIONS (8)
  - Depression [Unknown]
  - Crying [Unknown]
  - Arthralgia [Unknown]
  - Insomnia [Unknown]
  - Back pain [Unknown]
  - Weight decreased [Unknown]
  - Vision blurred [Unknown]
  - Fatigue [Unknown]
